FAERS Safety Report 8816458 (Version 1)
Quarter: 2012Q4

REPORT INFORMATION
  Report Type: Spontaneous
  Country: US (occurrence: None)
  Receive Date: 20120928
  Receipt Date: 20120928
  Transmission Date: 20130627
  Serious: Yes (Hospitalization)
  Sender: FDA-Public Use
  Company Number: None

PATIENT
  Age: 70 Year
  Sex: Male
  Weight: 99.7 kg

DRUGS (4)
  1. BORTEZOMIB [Suspect]
     Indication: SMALL CELL LYMPHOCYTIC LYMPHOMA
     Dosage: 3.6 mg Q7 days IV
     Route: 042
     Dates: start: 20120730, end: 20120917
  2. BORTEZOMIB [Suspect]
     Indication: CHRONIC LYMPHOCYTIC LEUKEMIA
     Dosage: 3.6 mg Q7 days IV
     Route: 042
     Dates: start: 20120730, end: 20120917
  3. TEMSIROLIMUS [Suspect]
     Indication: SMALL CELL LYMPHOCYTIC LYMPHOMA
     Dosage: 25 mg Q7 days IV
     Route: 042
     Dates: start: 20120730, end: 20120917
  4. TEMSIROLIMUS [Suspect]
     Indication: CHRONIC LYMPHOCYTIC LEUKEMIA
     Dosage: 25 mg Q7 days IV
     Route: 042
     Dates: start: 20120730, end: 20120917

REACTIONS (7)
  - Abdominal pain lower [None]
  - Constipation [None]
  - Cough [None]
  - Fatigue [None]
  - Nausea [None]
  - Vomiting [None]
  - Neutropenia [None]
